FAERS Safety Report 24701329 (Version 1)
Quarter: 2024Q4

REPORT INFORMATION
  Report Type: Spontaneous
  Country: US (occurrence: US)
  Receive Date: 20241205
  Receipt Date: 20241205
  Transmission Date: 20250115
  Serious: Yes (Other)
  Sender: TEVA
  Company Number: US-TEVA-VS-3270012

PATIENT
  Age: 74 Year
  Sex: Male

DRUGS (1)
  1. AUSTEDO XR [Suspect]
     Active Substance: DEUTETRABENAZINE
     Indication: Dystonia
     Route: 048

REACTIONS (2)
  - Dementia [Unknown]
  - Off label use [Unknown]
